FAERS Safety Report 5981376-0 (Version None)
Quarter: 2008Q4

REPORT INFORMATION
  Report Type: 
  Country: None (occurrence: None)
  Receive Date: 20081126
  Receipt Date: 20081117
  Transmission Date: 20090506
  Serious: Yes (Other)
  Sender: FDA-Public Use
  Company Number: 2008AP003130

PATIENT
  Sex: Male

DRUGS (1)
  1. AMLODIPINE BESYLATE [Suspect]
     Indication: HYPERTENSION
     Dosage: PO
     Route: 048

REACTIONS (4)
  - CAROTID ARTERY STENOSIS [None]
  - CEREBRAL HYPOPERFUSION [None]
  - CEREBROVASCULAR ACCIDENT [None]
  - HYPOTENSION [None]
